FAERS Safety Report 19188392 (Version 1)
Quarter: 2021Q2

REPORT INFORMATION
  Report Type: Spontaneous
  Country: US (occurrence: US)
  Receive Date: 20210427
  Receipt Date: 20210427
  Transmission Date: 20210717
  Serious: Yes (Hospitalization, Other)
  Sender: FDA-Public Use
  Company Number: US-009507513-1711USA008703

PATIENT
  Sex: Female

DRUGS (3)
  1. ZOSTAVAX [Suspect]
     Active Substance: VARICELLA-ZOSTER VIRUS STRAIN OKA/MERCK LIVE ANTIGEN
     Indication: PROPHYLAXIS
     Dosage: .65 MILLILITER
     Route: 058
     Dates: start: 20131106
  2. PNEUMOVAX 23 [Suspect]
     Active Substance: PNEUMOCOCCAL VACCINE, POLYVALENT 23
     Indication: PROPHYLAXIS
     Dosage: .5 MILLILITER
     Route: 030
     Dates: start: 20131106
  3. STERILE DILUENT (WATER) [Suspect]
     Active Substance: WATER
     Indication: MEDICATION DILUTION
     Dosage: SINGLE DOSE WITH ZOSTAVAX
     Route: 058
     Dates: start: 20131106, end: 20131106

REACTIONS (19)
  - Vaccination failure [Unknown]
  - Hypertension [Not Recovered/Not Resolved]
  - Hypercholesterolaemia [Not Recovered/Not Resolved]
  - Skin cancer [Unknown]
  - Hyperlipidaemia [Unknown]
  - Palpitations [Unknown]
  - Contraindicated product administered [Unknown]
  - Balance disorder [Not Recovered/Not Resolved]
  - Anxiety [Unknown]
  - Immune system disorder [Unknown]
  - Supraventricular extrasystoles [Unknown]
  - Osteoarthritis [Unknown]
  - Tremor [Unknown]
  - Atrial enlargement [Unknown]
  - Depression [Unknown]
  - Herpes zoster [Recovering/Resolving]
  - Ophthalmic herpes zoster [Unknown]
  - Posterior capsule opacification [Unknown]
  - Cardiac murmur [Unknown]

NARRATIVE: CASE EVENT DATE: 20131106
